FAERS Safety Report 4436211-9 (Version None)
Quarter: 2004Q3

REPORT INFORMATION
  Report Type: 
  Country: None (occurrence: None)
  Receive Date: 20040830
  Receipt Date: 20040521
  Transmission Date: 20050211
  Serious: Yes (Other)
  Sender: FDA-Public Use
  Company Number: US-BRISTOL-MYERS SQUIBB COMPANY-12593471

PATIENT

DRUGS (2)
  1. ERBITUX [Suspect]
     Route: 040
  2. BENADRYL [Concomitant]
     Indication: PREMEDICATION

REACTIONS (3)
  - INFUSION RELATED REACTION [None]
  - MEDICATION ERROR [None]
  - OVERDOSE [None]
